FAERS Safety Report 16201878 (Version 6)
Quarter: 2021Q3

REPORT INFORMATION
  Report Type: Report from Study
  Country: BE (occurrence: BE)
  Receive Date: 20190416
  Receipt Date: 20210721
  Transmission Date: 20211014
  Serious: Yes (Hospitalization, Other)
  Sender: FDA-Public Use
  Company Number: BE-ASPEN-GLO2017BE011499

PATIENT

DRUGS (23)
  1. DEXAMETHASONE. [Suspect]
     Active Substance: DEXAMETHASONE
     Dosage: 20 MG, 1 DOSE WEEKLY
     Route: 048
     Dates: start: 20170404, end: 20170425
  2. POMALIDOMIDE [Suspect]
     Active Substance: POMALIDOMIDE
     Indication: PLASMA CELL MYELOMA
     Dosage: 3 MG
     Route: 048
     Dates: start: 20170502, end: 20170518
  3. POMALIDOMIDE [Suspect]
     Active Substance: POMALIDOMIDE
     Dosage: DOSE NOT PROVIDED
     Route: 048
     Dates: start: 20170530
  4. NOSCAPINE [Concomitant]
     Active Substance: NOSCAPINE
     Indication: BRONCHITIS CHRONIC
     Dosage: 15 MG
     Route: 065
  5. POMALIDOMIDE [Suspect]
     Active Substance: POMALIDOMIDE
     Dosage: 4 MG
     Route: 048
     Dates: start: 20150815, end: 20150904
  6. CARVEDILOL. [Concomitant]
     Active Substance: CARVEDILOL
     Indication: HYPERTENSION
     Dosage: 6.25 MG
     Route: 065
  7. GAMMAGLOBULIN [Concomitant]
     Active Substance: HUMAN IMMUNOGLOBULIN G
     Indication: INFECTION PROPHYLAXIS
     Dosage: UNK
     Route: 065
     Dates: start: 20160920
  8. AERIUS [Concomitant]
     Indication: BRONCHITIS CHRONIC
     Dosage: 5 MG
     Route: 065
  9. POMALIDOMIDE [Suspect]
     Active Substance: POMALIDOMIDE
     Dosage: 3 MG
     Route: 048
     Dates: start: 20170404, end: 20170424
  10. CYCLOPHOSPHAMIDE. [Concomitant]
     Active Substance: CYCLOPHOSPHAMIDE
     Indication: PLASMA CELL MYELOMA
     Dosage: 50 MG
     Route: 065
     Dates: start: 20161116
  11. DICLOFENAC [Concomitant]
     Active Substance: DICLOFENAC
     Indication: PLASMA CELL MYELOMA
     Dosage: 2 MG
     Route: 065
  12. DEXAMETHASONE. [Suspect]
     Active Substance: DEXAMETHASONE
     Indication: PRODUCT USED FOR UNKNOWN INDICATION
     Dosage: 20 MG
     Route: 048
     Dates: start: 20150815, end: 20150905
  13. FORTIMEL [Concomitant]
     Active Substance: DIETARY SUPPLEMENT
     Indication: DECREASED APPETITE
     Dosage: 125 ML
     Route: 065
     Dates: start: 20160202
  14. PERINDOPRIL ARGININE [Concomitant]
     Active Substance: PERINDOPRIL ARGININE
     Indication: HYPERTENSION
     Dosage: 5 MG
     Route: 065
  15. DICLOFENAC [Concomitant]
     Active Substance: DICLOFENAC
     Indication: BACK PAIN
     Dosage: 2 G
     Route: 065
     Dates: start: 201607
  16. DEXAMETHASONE. [Suspect]
     Active Substance: DEXAMETHASONE
     Dosage: 20 MG
     Route: 048
     Dates: start: 20170502, end: 20170516
  17. ACETYLCYSTEINE. [Concomitant]
     Active Substance: ACETYLCYSTEINE
     Indication: BRONCHITIS CHRONIC
     Dosage: 1200 MG
     Route: 065
  18. TINZAPARIN SODIUM [Concomitant]
     Active Substance: TINZAPARIN SODIUM
     Indication: PULMONARY EMBOLISM
     Dosage: 14000 IU
     Route: 065
     Dates: start: 20160511
  19. DULOXETINE. [Concomitant]
     Active Substance: DULOXETINE
     Indication: DEPRESSION
     Dosage: 60 MG
     Route: 065
  20. BEFACT FORTE [Concomitant]
     Indication: VITAMIN SUPPLEMENTATION
     Route: 065
  21. DEXAMETHASONE. [Suspect]
     Active Substance: DEXAMETHASONE
     Indication: PLASMA CELL MYELOMA
     Dosage: DOSE NOT PROVIDED
     Route: 048
     Dates: start: 20170530
  22. ACICLOVIR [Concomitant]
     Active Substance: ACYCLOVIR
     Indication: PROPHYLAXIS
     Dosage: 800 MG
     Route: 065
  23. PREGABALINE [Concomitant]
     Active Substance: PREGABALIN
     Indication: POLYNEUROPATHY
     Dosage: 150 MG
     Route: 065

REACTIONS (4)
  - Respiratory tract infection [Recovered/Resolved]
  - Leukopenia [Recovered/Resolved]
  - Pneumonia [Recovered/Resolved]
  - Neutropenia [Recovered/Resolved]

NARRATIVE: CASE EVENT DATE: 20170424
